FAERS Safety Report 9427472 (Version 1)
Quarter: 2013Q3

REPORT INFORMATION
  Report Type: Spontaneous
  Country: US (occurrence: US)
  Receive Date: 20130730
  Receipt Date: 20130730
  Transmission Date: 20140515
  Serious: No
  Sender: FDA-Public Use
  Company Number: US-ABBOTT-12P-163-1005415-00

PATIENT
  Age: 79 Year
  Sex: Male
  Weight: 95.34 kg

DRUGS (4)
  1. NIASPAN (COATED) [Suspect]
     Indication: BLOOD CHOLESTEROL INCREASED
     Dates: start: 201210
  2. METFORMIN [Concomitant]
     Indication: DIABETES MELLITUS
  3. METOPROLOL [Concomitant]
     Indication: HYPERTENSION
  4. TRIAMTERENE [Concomitant]
     Indication: HYPERTENSION

REACTIONS (2)
  - Muscular weakness [Not Recovered/Not Resolved]
  - Pruritus [Not Recovered/Not Resolved]
